FAERS Safety Report 6844354-5 (Version None)
Quarter: 2010Q3

REPORT INFORMATION
  Report Type: 
  Country: None (occurrence: None)
  Receive Date: 20100712
  Receipt Date: 20100705
  Transmission Date: 20110219
  Serious: Yes (Hospitalization)
  Sender: FDA-Public Use
  Company Number: 012897

PATIENT
  Sex: Female
  Weight: 52 kg

DRUGS (7)
  1. CERTOLIZUMAB PEGOL (CERTOLIZUMAB PEGOL) [Suspect]
     Indication: RHEUMATOID ARTHRITIS
     Dosage: 200 MG 1X/2 WEEKS SUBCUTANEOUS, (SUBCUTANEOUS)
     Route: 058
     Dates: start: 20090426, end: 20100520
  2. CERTOLIZUMAB PEGOL (CERTOLIZUMAB PEGOL) [Suspect]
     Indication: RHEUMATOID ARTHRITIS
     Dosage: 200 MG 1X/2 WEEKS SUBCUTANEOUS, (SUBCUTANEOUS)
     Route: 058
     Dates: start: 20100621
  3. ARAVA [Concomitant]
  4. TENORDATE [Concomitant]
  5. ANTIHYPERTENSIVES [Concomitant]
  6. VOGALENE [Concomitant]
  7. ACETAMINOPHEN [Concomitant]

REACTIONS (7)
  - ASTHENIA [None]
  - CHILLS [None]
  - ESCHERICHIA URINARY TRACT INFECTION [None]
  - HEADACHE [None]
  - HYPERHIDROSIS [None]
  - NAUSEA [None]
  - PYELONEPHRITIS ACUTE [None]
